FAERS Safety Report 10128947 (Version 3)
Quarter: 2014Q3

REPORT INFORMATION
  Report Type: Spontaneous
  Country: JP (occurrence: JP)
  Receive Date: 20140428
  Receipt Date: 20140813
  Transmission Date: 20150326
  Serious: Yes (Death)
  Sender: FDA-Public Use
  Company Number: JP-JNJFOC-20140414431

PATIENT
  Age: 52 Year
  Sex: Male

DRUGS (8)
  1. WINTERMIN [Suspect]
     Active Substance: PROMAZINE
     Indication: DRUG DEPENDENCE
     Route: 048
     Dates: start: 20121102
  2. INVEGA [Suspect]
     Active Substance: PALIPERIDONE
     Indication: SUBSTANCE-INDUCED PSYCHOTIC DISORDER
     Route: 048
     Dates: start: 20120124, end: 201209
  3. HALOPERIDOL. [Suspect]
     Active Substance: HALOPERIDOL
     Indication: PRODUCT USED FOR UNKNOWN INDICATION
     Route: 048
     Dates: start: 20130827
  4. BLONANSERIN [Suspect]
     Active Substance: BLONANSERIN
     Indication: DRUG DEPENDENCE
     Route: 048
     Dates: start: 20130827
  5. ROHYPNOL [Concomitant]
     Active Substance: FLUNITRAZEPAM
     Indication: IRRITABILITY
  6. INVEGA [Suspect]
     Active Substance: PALIPERIDONE
     Indication: SUBSTANCE-INDUCED PSYCHOTIC DISORDER
     Route: 048
     Dates: start: 201209, end: 20130827
  7. LEXOTAN [Concomitant]
     Active Substance: BROMAZEPAM
     Indication: IRRITABILITY
     Route: 048
  8. SEPAZON [Concomitant]
     Active Substance: CLOXAZOLAM
     Route: 048

REACTIONS (2)
  - Off label use [Unknown]
  - Death [Fatal]
